FAERS Safety Report 9774208 (Version 2)
Quarter: 2013Q4

REPORT INFORMATION
  Report Type: Spontaneous
  Country: SE (occurrence: SE)
  Receive Date: 20131220
  Receipt Date: 20131220
  Transmission Date: 20140711
  Serious: Yes (Other)
  Sender: FDA-Public Use
  Company Number: SE-AMGEN-SWESP2013083775

PATIENT
  Age: 81 Year
  Sex: Female

DRUGS (3)
  1. NEULASTA [Suspect]
     Indication: PROPHYLAXIS
     Dosage: 6 MG, UNK
     Route: 065
     Dates: start: 20121113
  2. VEPESID [Concomitant]
     Indication: SMALL CELL LUNG CANCER
     Dosage: GIVEN FOR 5 DAYS
     Dates: start: 20131021
  3. VEPESID [Concomitant]
     Indication: METASTASES TO LIVER

REACTIONS (3)
  - Neutrophil count abnormal [Recovered/Resolved]
  - Investigation abnormal [Recovered/Resolved]
  - Drug ineffective [Unknown]
